FAERS Safety Report 6214109-3 (Version None)
Quarter: 2009Q2

REPORT INFORMATION
  Report Type: 
  Country: None (occurrence: None)
  Receive Date: 20090604
  Receipt Date: 20090602
  Transmission Date: 20091009
  Serious: Yes (Hospitalization)
  Sender: FDA-Public Use
  Company Number: TW-ROCHE-635779

PATIENT
  Sex: Male
  Weight: 62 kg

DRUGS (5)
  1. CAPECITABINE [Suspect]
     Indication: GASTRIC CANCER
     Dosage: LAST DOSE PRIOR TO THE SAE: 21/01/2008
     Route: 048
     Dates: start: 20070907
  2. OXALIPLATIN [Suspect]
     Indication: GASTRIC CANCER
     Route: 042
     Dates: start: 20070907
  3. AMINO ACID INJ [Concomitant]
     Dates: start: 20070907, end: 20080121
  4. VITAMIN B6 [Concomitant]
     Dates: start: 20070907, end: 20080121
  5. HEPARIN [Concomitant]
     Dosage: DOSE: 5000 IU
     Dates: start: 20070907, end: 20080121

REACTIONS (1)
  - MALNUTRITION [None]
